FAERS Safety Report 24205776 (Version 1)
Quarter: 2024Q3

REPORT INFORMATION
  Report Type: Report from Study
  Country: US (occurrence: US)
  Receive Date: 20240813
  Receipt Date: 20240813
  Transmission Date: 20241016
  Serious: Yes (Death, Life-Threatening, Hospitalization, Other)
  Sender: NEXUS PHARMACEUTICALS
  Company Number: US-Nexus Pharma-000299

PATIENT
  Age: 56 Year
  Sex: Male

DRUGS (5)
  1. NELARABINE [Suspect]
     Active Substance: NELARABINE
     Indication: Leukaemia recurrent
     Dosage: 3 CYCLES, CUMULATIVE DOSE: 18285 MG
     Dates: start: 202210
  2. DECITABINE [Suspect]
     Active Substance: DECITABINE
     Indication: Leukaemia recurrent
     Dates: start: 202210
  3. VENETOCLAX [Suspect]
     Active Substance: VENETOCLAX
     Indication: Leukaemia recurrent
     Dates: start: 202210
  4. AZACITIDINE [Suspect]
     Active Substance: AZACITIDINE
     Indication: Leukaemia recurrent
     Dates: start: 202305
  5. VENETOCLAX [Suspect]
     Active Substance: VENETOCLAX
     Indication: Leukaemia recurrent
     Dates: start: 202305

REACTIONS (3)
  - Peripheral sensorimotor neuropathy [Fatal]
  - Respiratory failure [Fatal]
  - Guillain-Barre syndrome [Fatal]
